FAERS Safety Report 16965486 (Version 1)
Quarter: 2019Q4

REPORT INFORMATION
  Report Type: Spontaneous
  Country: HU (occurrence: HU)
  Receive Date: 20191028
  Receipt Date: 20191028
  Transmission Date: 20200122
  Serious: Yes (Other)
  Sender: FDA-Public Use
  Company Number: HU-MYLANLABS-2019M1042901

PATIENT
  Age: 64 Year
  Sex: Female

DRUGS (14)
  1. PALBOCICLIB [Suspect]
     Active Substance: PALBOCICLIB
     Dosage: 125 MG, CYCLIC (3/1 DOSING SCHEMA) (7TH CYCLE)
     Route: 065
  2. LETROZOLE. [Suspect]
     Active Substance: LETROZOLE
     Dosage: 125 MILLIGRAM, CYCLE,(3/1 DOSING SCHEMA) (2ND CYCLE)
     Dates: start: 20170810, end: 2017
  3. PALBOCICLIB [Suspect]
     Active Substance: PALBOCICLIB
     Dosage: 125 MG, CYCLIC, (3/1 DOSING SCHEMA) (8TH CYCLE)
     Route: 065
  4. LETROZOLE. [Suspect]
     Active Substance: LETROZOLE
     Dosage: 2.5 MG, DAILY (CONTINOUS)
     Route: 065
     Dates: start: 20170713
  5. LETROZOLE. [Suspect]
     Active Substance: LETROZOLE
     Indication: BREAST CANCER METASTATIC
     Dosage: UNK
     Route: 065
     Dates: start: 20140224, end: 20150929
  6. PALBOCICLIB [Suspect]
     Active Substance: PALBOCICLIB
     Dosage: 125 MG/DAY, CYCLIC (3/1 DOSING SCHEMA) (4TH CYCLE)
     Route: 065
     Dates: start: 20171003
  7. PALBOCICLIB [Suspect]
     Active Substance: PALBOCICLIB
     Dosage: 125 MG, CYCLIC, (3/1 DOSING SCHEMA) (6TH CYCLE)
     Route: 065
  8. ZOLEDRONIC ACID [Suspect]
     Active Substance: ZOLEDRONIC ACID
     Indication: BREAST CANCER METASTATIC
     Dosage: UNK, CYCLIC, EVERY 4 WEEKS
     Route: 065
     Dates: start: 20170713
  9. PALBOCICLIB [Suspect]
     Active Substance: PALBOCICLIB
     Dosage: 125 MG/DAY, CYCLIC (3/1 DOSING SCHEMA) (3RD CYCLE)
     Route: 065
     Dates: start: 20170904, end: 2017
  10. PALBOCICLIB [Suspect]
     Active Substance: PALBOCICLIB
     Dosage: 125 MG/DAY, CYCLIC (3/1 DOSING SCHEMA) (2ND CYCLE)
     Route: 065
     Dates: start: 20170810, end: 2017
  11. PALBOCICLIB [Suspect]
     Active Substance: PALBOCICLIB
     Indication: BREAST CANCER METASTATIC
     Dosage: UNK
     Route: 065
     Dates: start: 20140224, end: 20150929
  12. PALBOCICLIB [Suspect]
     Active Substance: PALBOCICLIB
     Dosage: 125 MG/DAY/1X FOR 21CONSECUTIVE DAYS FOLLOWED BY 7 DAYS OFF TREATMENT (3/1)(1ST CYCLE)
     Route: 065
     Dates: start: 20170713, end: 2017
  13. PALBOCICLIB [Suspect]
     Active Substance: PALBOCICLIB
     Dosage: 125 MG, CYCLIC, (3/1 DOSING SCHEMA) (5TH CYCLE)
     Route: 065
  14. ANASTROZOLE. [Concomitant]
     Active Substance: ANASTROZOLE
     Indication: PRODUCT USED FOR UNKNOWN INDICATION
     Route: 065

REACTIONS (10)
  - Pleural effusion [Unknown]
  - Neutropenia [Unknown]
  - Metastases to lung [Unknown]
  - Metastases to the mediastinum [Unknown]
  - Hot flush [Unknown]
  - Malignant neoplasm progression [Unknown]
  - Compression fracture [Unknown]
  - Metastases to bone [Unknown]
  - Breast cancer metastatic [Unknown]
  - Metastases to lymph nodes [Unknown]

NARRATIVE: CASE EVENT DATE: 201706
